FAERS Safety Report 15458539 (Version 1)
Quarter: 2018Q3

REPORT INFORMATION
  Report Type: Spontaneous
  Country: US (occurrence: US)
  Receive Date: 20180930
  Receipt Date: 20180930
  Transmission Date: 20181020
  Serious: Yes (Hospitalization)
  Sender: FDA-Public Use
  Company Number: None

PATIENT
  Age: 58 Year
  Sex: Male
  Weight: 137.3 kg

DRUGS (1)
  1. FARXIGA [Suspect]
     Active Substance: DAPAGLIFLOZIN PROPANEDIOL
     Route: 048
     Dates: start: 20180911, end: 20180922

REACTIONS (15)
  - Hypertension [None]
  - Pyrexia [None]
  - Sepsis [None]
  - Urinary tract infection [None]
  - Arthralgia [None]
  - Tachycardia [None]
  - Pyelonephritis [None]
  - Chills [None]
  - Dysuria [None]
  - Tachypnoea [None]
  - Back pain [None]
  - Blood lactic acid increased [None]
  - Glucose urine present [None]
  - Pollakiuria [None]
  - Constipation [None]

NARRATIVE: CASE EVENT DATE: 20180923
